FAERS Safety Report 9652154 (Version 8)
Quarter: 2016Q4

REPORT INFORMATION
  Report Type: Spontaneous
  Country: US (occurrence: US)
  Receive Date: 20131029
  Receipt Date: 20161222
  Transmission Date: 20170207
  Serious: Yes (Hospitalization, Other)
  Sender: FDA-Public Use
  Company Number: US-009507513-1310USA010705

PATIENT
  Sex: Female
  Weight: 67.12 kg

DRUGS (3)
  1. FOSAMAX [Suspect]
     Active Substance: ALENDRONATE SODIUM
     Indication: OSTEOPOROSIS
     Dosage: 70 MG, QW
     Route: 048
     Dates: start: 20061127, end: 20080205
  2. ARMOUR THYROID [Concomitant]
     Active Substance: THYROID, PORCINE
     Indication: HYPOTHYROIDISM
     Dosage: 120 MG, QD
     Route: 048
     Dates: start: 1956
  3. ALENDRONATE SODIUM. [Suspect]
     Active Substance: ALENDRONATE SODIUM
     Indication: OSTEOPOROSIS
     Dosage: 70 MG, QW
     Route: 048
     Dates: start: 20080319, end: 20110412

REACTIONS (16)
  - Femur fracture [Unknown]
  - Atrial fibrillation [Unknown]
  - Fall [Unknown]
  - Arthropathy [Unknown]
  - Senile osteoporosis [Unknown]
  - Femur fracture [Unknown]
  - Depression [Unknown]
  - Open reduction of fracture [Unknown]
  - Packed red blood cell transfusion [Unknown]
  - Urinary tract infection [Unknown]
  - Anxiety [Unknown]
  - Bone graft [Unknown]
  - Haematocrit decreased [Unknown]
  - Phobia [Unknown]
  - Anxiety [Not Recovered/Not Resolved]
  - Fear of closed spaces [Unknown]

NARRATIVE: CASE EVENT DATE: 20091121
